FAERS Safety Report 17315815 (Version 8)
Quarter: 2022Q4

REPORT INFORMATION
  Report Type: Spontaneous
  Country: US (occurrence: US)
  Receive Date: 20200124
  Receipt Date: 20221003
  Transmission Date: 20230113
  Serious: No
  Sender: FDA-Public Use
  Company Number: US-PFIZER INC-2020030061

PATIENT
  Age: 67 Year

DRUGS (2)
  1. IBRANCE [Suspect]
     Active Substance: PALBOCICLIB
     Dosage: 125 MG, CYCLIC (ONCE A DAY FOR 21 DAYS AND 7 DAYS)
     Route: 048
     Dates: start: 201806
  2. IBRANCE [Suspect]
     Active Substance: PALBOCICLIB
     Dosage: UNK

REACTIONS (9)
  - Circumstance or information capable of leading to medication error [Unknown]
  - Product storage error [Unknown]
  - Myalgia [Unknown]
  - Fatigue [Unknown]
  - Sleep disorder [Unknown]
  - Weight increased [Unknown]
  - Alopecia [Unknown]
  - Onychoclasis [Unknown]
  - Malaise [Unknown]
